FAERS Safety Report 4387847-5 (Version None)
Quarter: 2004Q2

REPORT INFORMATION
  Report Type: 
  Country: None (occurrence: None)
  Receive Date: 20040630
  Receipt Date: 20040614
  Transmission Date: 20050107
  Serious: Yes (Other)
  Sender: FDA-Public Use
  Company Number: US-AMGEN-US080996

PATIENT
  Sex: Female
  Weight: 59.3 kg

DRUGS (12)
  1. ENBREL [Suspect]
     Indication: RHEUMATOID ARTHRITIS
  2. METHOTREXATE [Concomitant]
     Route: 048
  3. PREDNISONE [Concomitant]
  4. PLAVIX [Concomitant]
  5. ASPIRIN [Concomitant]
  6. NIFEDIPINE [Concomitant]
  7. CALCIUM [Concomitant]
  8. MULTI-VITAMINS [Concomitant]
  9. FOLIC ACID [Concomitant]
  10. FOSAMAX [Concomitant]
  11. NAPROXEN [Concomitant]
  12. FERROUS SULFATE TAB [Concomitant]

REACTIONS (4)
  - ANTINUCLEAR ANTIBODY POSITIVE [None]
  - DOUBLE STRANDED DNA ANTIBODY [None]
  - RAYNAUD'S PHENOMENON [None]
  - VASCULITIS [None]
